FAERS Safety Report 10249203 (Version 1)
Quarter: 2014Q2

REPORT INFORMATION
  Report Type: Spontaneous
  Country: US (occurrence: None)
  Receive Date: 20140618
  Receipt Date: 20140618
  Transmission Date: 20141212
  Serious: Yes (Disabling)
  Sender: FDA-Public Use
  Company Number: 2392362

PATIENT
  Age: 35 Year
  Sex: Female

DRUGS (6)
  1. CYTARABINE [Suspect]
     Indication: ACUTE LYMPHOCYTIC LEUKAEMIA
     Route: 037
  2. CYCLOPHOSPHAMIDE [Concomitant]
  3. VINCRISTINE [Concomitant]
  4. DOXORUBICIN [Concomitant]
  5. DEXAMETHASONE [Concomitant]
  6. ASPARAGINASE [Concomitant]

REACTIONS (6)
  - Myelitis [None]
  - Muscular weakness [None]
  - Urinary incontinence [None]
  - Faecal incontinence [None]
  - Peripheral sensory neuropathy [None]
  - Nervous system disorder [None]
